FAERS Safety Report 10959775 (Version 1)
Quarter: 2015Q1

REPORT INFORMATION
  Report Type: Spontaneous
  Country: US (occurrence: None)
  Receive Date: 20150326
  Receipt Date: 20150326
  Transmission Date: 20150721
  Serious: Yes (Death, Hospitalization)
  Sender: FDA-Public Use
  Company Number: None

PATIENT
  Age: 72 Year
  Sex: Female
  Weight: 100 kg

DRUGS (4)
  1. PACLITAXEL. [Concomitant]
     Active Substance: PACLITAXEL
  2. PACLITAXEL. [Suspect]
     Active Substance: PACLITAXEL
     Indication: OVARIAN CANCER METASTATIC
     Dates: start: 20150309, end: 20150309
  3. DEXAMETHASONE. [Concomitant]
     Active Substance: DEXAMETHASONE
  4. RANITIDINE [Concomitant]
     Active Substance: RANITIDINE\RANITIDINE HYDROCHLORIDE

REACTIONS (8)
  - Cardio-respiratory arrest [None]
  - Pericardial effusion [None]
  - Unresponsive to stimuli [None]
  - Hypersensitivity [None]
  - Electrocardiogram ST segment elevation [None]
  - Malignant pleural effusion [None]
  - Abdominal compartment syndrome [None]
  - Hypotension [None]

NARRATIVE: CASE EVENT DATE: 20150309
